FAERS Safety Report 4924734-5 (Version None)
Quarter: 2006Q1

REPORT INFORMATION
  Report Type: 
  Country: None (occurrence: None)
  Receive Date: 20060227
  Receipt Date: 20060208
  Transmission Date: 20060701
  Serious: Yes (Death, Hospitalization)
  Sender: FDA-Public Use
  Company Number: JP-MERCK-0602USA03181

PATIENT
  Age: 26 Year
  Sex: Female

DRUGS (9)
  1. ZOCOR [Suspect]
     Indication: HYPERLIPIDAEMIA
     Route: 048
     Dates: start: 20060131, end: 20060204
  2. ONEALFA [Concomitant]
     Route: 048
     Dates: start: 20051219, end: 20060204
  3. OMEPRAL [Concomitant]
     Route: 065
     Dates: start: 20051212, end: 20060204
  4. WARFARIN POTASSIUM [Concomitant]
     Route: 048
     Dates: start: 20051213, end: 20060204
  5. LASIX [Concomitant]
     Route: 048
     Dates: start: 20051221, end: 20060207
  6. NEORAL [Concomitant]
     Route: 048
     Dates: start: 20060201, end: 20060207
  7. CRESTOR [Concomitant]
     Indication: HYPERLIPIDAEMIA
     Route: 048
     Dates: start: 20060107, end: 20060130
  8. MEDROL [Concomitant]
     Route: 048
     Dates: start: 20060101, end: 20060207
  9. GASCON [Concomitant]
     Route: 048
     Dates: start: 20060104, end: 20060204

REACTIONS (4)
  - C-REACTIVE PROTEIN INCREASED [None]
  - HEPATITIS FULMINANT [None]
  - HEPATOMEGALY [None]
  - RENAL FAILURE ACUTE [None]
